FAERS Safety Report 13098437 (Version 2)
Quarter: 2017Q1

REPORT INFORMATION
  Report Type: Spontaneous
  Country: US (occurrence: US)
  Receive Date: 20170109
  Receipt Date: 20170130
  Transmission Date: 20170428
  Serious: Yes (Other)
  Sender: FDA-Public Use
  Company Number: US-BAYER-2017-004412

PATIENT
  Age: 37 Year
  Sex: Female

DRUGS (1)
  1. MIRENA [Suspect]
     Active Substance: LEVONORGESTREL
     Indication: MENORRHAGIA
     Dosage: 20 MCG/24HR, CONT
     Route: 015
     Dates: start: 20161201

REACTIONS (3)
  - Vaginal haemorrhage [Recovered/Resolved]
  - Post procedural haemorrhage [Recovered/Resolved with Sequelae]
  - Device use error [None]

NARRATIVE: CASE EVENT DATE: 20161210
